FAERS Safety Report 5610376-5 (Version None)
Quarter: 2008Q1

REPORT INFORMATION
  Report Type: 
  Country: None (occurrence: None)
  Receive Date: 20080128
  Receipt Date: 20080117
  Transmission Date: 20080703
  Serious: Yes (Hospitalization)
  Sender: FDA-Public Use
  Company Number: CLOF-1000057

PATIENT
  Age: 69 Year
  Sex: Female
  Weight: 82.6 kg

DRUGS (3)
  1. CLOLAR [Suspect]
     Indication: BONE MARROW CONDITIONING REGIMEN
     Dosage: 76 MG, INTRAVENOUS
     Route: 042
     Dates: start: 20071114, end: 20071116
  2. CAMPATH [Suspect]
     Indication: BONE MARROW CONDITIONING REGIMEN
     Dosage: 20 MG, INTRAVNOUS
     Route: 042
     Dates: start: 20071114, end: 20071119
  3. MELPHALAN (MELPHALAN) [Suspect]
     Indication: BONE MARROW CONDITIONING REGIMEN
     Dosage: 266 MG, ONCE, INTRAVENOUS
     Route: 042
     Dates: start: 20071126, end: 20071126

REACTIONS (13)
  - AGITATION [None]
  - CARDIAC FAILURE CONGESTIVE [None]
  - CARDIOMEGALY [None]
  - CEREBRAL ISCHAEMIA [None]
  - CONDITION AGGRAVATED [None]
  - DRUG LEVEL DECREASED [None]
  - DYSPNOEA [None]
  - HALLUCINATIONS, MIXED [None]
  - HYPOVOLAEMIA [None]
  - METABOLIC ENCEPHALOPATHY [None]
  - PLEURAL EFFUSION [None]
  - PNEUMOCYSTIS JIROVECI PNEUMONIA [None]
  - PULMONARY OEDEMA [None]
